FAERS Safety Report 10460630 (Version 2)
Quarter: 2014Q4

REPORT INFORMATION
  Report Type: Spontaneous
  Country: US (occurrence: US)
  Receive Date: 20140918
  Receipt Date: 20141008
  Transmission Date: 20150528
  Serious: Yes (Other)
  Sender: FDA-Public Use
  Company Number: US-AUROBINDO-AUR-APL-2014-09876

PATIENT
  Age: 85 Year
  Sex: Female
  Weight: 45.35 kg

DRUGS (3)
  1. CALTRATE WITH VITAMIN D [Suspect]
     Active Substance: CALCIUM CARBONATE\VITAMIN D
     Indication: BONE DISORDER
     Dosage: 600 MG, TWO TIMES A DAY
     Route: 048
     Dates: start: 1999
  2. LISINOPRIL TABLET [Suspect]
     Active Substance: LISINOPRIL
     Indication: BLOOD PRESSURE ABNORMAL
     Dosage: 0.5 DF, (HALF TABLET) DAILY
     Route: 065
  3. LISINOPRIL TABLET [Suspect]
     Active Substance: LISINOPRIL
     Indication: HYPERTENSION

REACTIONS (3)
  - Intentional product use issue [Unknown]
  - Choking [Unknown]
  - Product size issue [Unknown]
